FAERS Safety Report 24355020 (Version 7)
Quarter: 2025Q2

REPORT INFORMATION
  Report Type: Report from Study
  Country: US (occurrence: US)
  Receive Date: 20240923
  Receipt Date: 20250611
  Transmission Date: 20250717
  Serious: No
  Sender: SUNOVION
  Company Number: US-SUMITOMO PHARMA SWITZERLAND GMBH-2024SPA002111

PATIENT

DRUGS (21)
  1. ORGOVYX [Suspect]
     Active Substance: RELUGOLIX
     Indication: Prostate cancer
     Dosage: 120 MG, QD
     Route: 048
     Dates: start: 20240820
  2. FIRMAGON [Suspect]
     Active Substance: DEGARELIX ACETATE
     Route: 065
  3. ACETAMINOPHEN [Concomitant]
     Active Substance: ACETAMINOPHEN
     Route: 065
  4. ADVIL [Concomitant]
     Active Substance: IBUPROFEN
     Route: 065
  5. ASPIRIN [Concomitant]
     Active Substance: ASPIRIN
     Route: 065
  6. AZELASTINE [Concomitant]
     Active Substance: AZELASTINE
     Route: 065
  7. Centrum Silver 50+Men [Concomitant]
     Route: 065
  8. DESCOVY [Concomitant]
     Active Substance: EMTRICITABINE\TENOFOVIR ALAFENAMIDE FUMARATE
     Route: 065
  9. DIPHENHYDRAMINE [Concomitant]
     Active Substance: DIPHENHYDRAMINE
     Route: 065
  10. DRISDOL [Concomitant]
     Active Substance: ERGOCALCIFEROL
     Route: 048
  11. KRILL OIL [Concomitant]
     Active Substance: DIETARY SUPPLEMENT\KRILL OIL
     Route: 065
  12. METAMUCIL [Concomitant]
     Active Substance: PLANTAGO SEED
     Route: 065
  13. PSYLLIUM HUSK [Concomitant]
     Active Substance: PSYLLIUM HUSK
     Route: 065
  14. ROSUVASTATIN [Concomitant]
     Active Substance: ROSUVASTATIN
     Route: 065
  15. TADALAFIL [Concomitant]
     Active Substance: TADALAFIL
     Route: 065
  16. TAMSULOSIN [Concomitant]
     Active Substance: TAMSULOSIN
     Route: 065
  17. HERBALS\TURMERIC [Concomitant]
     Active Substance: HERBALS\TURMERIC
     Route: 065
  18. OMEGA-3 ACIDS [Concomitant]
     Active Substance: OMEGA-3 FATTY ACIDS
     Route: 065
  19. VITAMIN D2 [Concomitant]
     Active Substance: ERGOCALCIFEROL
     Route: 065
  20. FISH OIL [Concomitant]
     Active Substance: FISH OIL
     Route: 065
  21. Soursop graviola [Concomitant]
     Route: 065

REACTIONS (12)
  - Intervertebral disc protrusion [Unknown]
  - Pain [Unknown]
  - Vitamin D decreased [Not Recovered/Not Resolved]
  - Joint swelling [Unknown]
  - Pelvic floor dysfunction [Unknown]
  - Contusion [Unknown]
  - Burning sensation [Unknown]
  - Myalgia [Recovering/Resolving]
  - Arthralgia [Recovering/Resolving]
  - Hot flush [Recovering/Resolving]
  - Incorrect dose administered [Unknown]
  - Product dose omission issue [Unknown]
